FAERS Safety Report 9717408 (Version 1)
Quarter: 2013Q4

REPORT INFORMATION
  Report Type: Spontaneous
  Country: US (occurrence: US)
  Receive Date: 20131127
  Receipt Date: 20131127
  Transmission Date: 20140711
  Serious: No
  Sender: FDA-Public Use
  Company Number: US-GILEAD-2008-0019653

PATIENT
  Age: 76 Year
  Sex: Male
  Weight: 108.86 kg

DRUGS (10)
  1. LETAIRIS [Suspect]
     Indication: PULMONARY ARTERIAL HYPERTENSION
     Route: 048
     Dates: start: 20081206, end: 20081219
  2. FUROSEMIDE [Concomitant]
  3. ASA LOW DOSE [Concomitant]
  4. BUMETANIDE [Concomitant]
  5. DOXAZOSIN [Concomitant]
  6. SINEMET [Concomitant]
  7. MIRAPEX [Concomitant]
  8. FOLIC ACID [Concomitant]
  9. K-DUR [Concomitant]
  10. VITAMIN B-12 [Concomitant]

REACTIONS (1)
  - Hallucination [Recovered/Resolved]
